FAERS Safety Report 7135099-5 (Version None)
Quarter: 2010Q4

REPORT INFORMATION
  Report Type: 
  Country: None (occurrence: None)
  Receive Date: 20101203
  Receipt Date: 20101118
  Transmission Date: 20110411
  Serious: Yes (Hospitalization, Other)
  Sender: FDA-Public Use
  Company Number: US-ELI_LILLY_AND_COMPANY-US201011005463

PATIENT
  Age: 67 Year
  Sex: Female

DRUGS (3)
  1. CYMBALTA [Suspect]
     Indication: PAIN
     Dosage: 30 MG, 2/D
     Dates: start: 20101111, end: 20101118
  2. LORTAB [Concomitant]
     Dates: end: 20101110
  3. MORPHINE [Concomitant]
     Dates: end: 20101110

REACTIONS (2)
  - DYSPNOEA [None]
  - SEROTONIN SYNDROME [None]
